FAERS Safety Report 21463810 (Version 1)
Quarter: 2022Q4

REPORT INFORMATION
  Report Type: Spontaneous
  Country: US (occurrence: US)
  Receive Date: 20221017
  Receipt Date: 20221017
  Transmission Date: 20230113
  Serious: No
  Sender: FDA-Public Use
  Company Number: US-NOVAST LABORATORIES INC.-2022NOV000005

PATIENT

DRUGS (1)
  1. NIFEDIPINE [Suspect]
     Active Substance: NIFEDIPINE
     Indication: Blood pressure abnormal
     Dosage: UNK
     Route: 065

REACTIONS (7)
  - Heart rate increased [Unknown]
  - Palpitations [Unknown]
  - Blood pressure inadequately controlled [Unknown]
  - Therapeutic product effect decreased [Unknown]
  - Flushing [Unknown]
  - Pruritus [Unknown]
  - Pollakiuria [Unknown]

NARRATIVE: CASE EVENT DATE: 20190101
